FAERS Safety Report 9461539 (Version 1)
Quarter: 2013Q3

REPORT INFORMATION
  Report Type: Spontaneous
  Country: US (occurrence: US)
  Receive Date: 20130816
  Receipt Date: 20130816
  Transmission Date: 20140515
  Serious: Yes (Death)
  Sender: FDA-Public Use
  Company Number: US-BRISTOL-MYERS SQUIBB COMPANY-19191337

PATIENT
  Age: 51 Year
  Sex: Female

DRUGS (20)
  1. SPRYCEL (CML) TABS 100 MG [Suspect]
     Indication: CHRONIC MYELOID LEUKAEMIA
     Route: 048
     Dates: start: 20130509
  2. ALBUTEROL [Concomitant]
  3. BENZONATATE [Concomitant]
  4. BUMETANIDE [Concomitant]
  5. CALCIUM + VITAMIN D [Concomitant]
  6. COLCRYS [Concomitant]
  7. CYTOMEL [Concomitant]
  8. NOVOLOG [Concomitant]
  9. OXYCODONE [Concomitant]
  10. EXCEDRIN MIGRAINE [Concomitant]
  11. FLONASE [Concomitant]
  12. GABAPENTIN [Concomitant]
  13. HYDROXYZINE [Concomitant]
  14. SYMBICORT [Concomitant]
  15. PREDNISONE [Concomitant]
  16. SINGULAIR [Concomitant]
  17. SPIRONOLACTONE [Concomitant]
  18. TRAMADOL [Concomitant]
  19. TUMS [Concomitant]
  20. XANAX [Concomitant]

REACTIONS (1)
  - Death [Fatal]
